FAERS Safety Report 4698065-5 (Version None)
Quarter: 2005Q2

REPORT INFORMATION
  Report Type: 
  Country: None (occurrence: None)
  Receive Date: 20050622
  Receipt Date: 20050622
  Transmission Date: 20051028
  Serious: Yes (Death)
  Sender: FDA-Public Use
  Company Number: None

PATIENT
  Sex: Male
  Weight: 78 kg

DRUGS (3)
  1. FLUDARAVBINE [Suspect]
     Indication: NON-HODGKIN'S LYMPHOMA
     Dosage: 60 MGIVQDXX 5 DOSES
     Route: 042
     Dates: start: 20040330
  2. BUSULFAN [Suspect]
     Dosage: 70MGIVQ6HX8DOSES
     Route: 042
  3. ATGAM [Suspect]
     Dosage: 200MG IV QDX 4DOSES
     Route: 042

REACTIONS (6)
  - CYTOMEGALOVIRUS COLITIS [None]
  - ENCEPHALITIS CYTOMEGALOVIRUS [None]
  - FAILURE TO THRIVE [None]
  - PNEUMONIA [None]
  - POST PROCEDURAL COMPLICATION [None]
  - SEPTIC SHOCK [None]
